FAERS Safety Report 9584654 (Version 1)
Quarter: 2013Q4

REPORT INFORMATION
  Report Type: Spontaneous
  Country: US (occurrence: US)
  Receive Date: 20131002
  Receipt Date: 20131002
  Transmission Date: 20140711
  Serious: No
  Sender: FDA-Public Use
  Company Number: US-AMGEN-USASP2013054531

PATIENT
  Age: 49 Year
  Sex: Male
  Weight: 126.98 kg

DRUGS (1)
  1. ENBREL [Suspect]
     Indication: PSORIATIC ARTHROPATHY
     Dosage: 50 MG, ONCE A WEEK
     Route: 058
     Dates: start: 20080924

REACTIONS (5)
  - Scratch [Unknown]
  - Influenza like illness [Unknown]
  - Rash [Unknown]
  - Erythema [Unknown]
  - Swelling [Unknown]
